FAERS Safety Report 6970290-X (Version None)
Quarter: 2010Q3

REPORT INFORMATION
  Report Type: 
  Country: None (occurrence: None)
  Receive Date: 20100908
  Receipt Date: 20100831
  Transmission Date: 20110219
  Serious: Yes (Other)
  Sender: FDA-Public Use
  Company Number: GB-TEVA-247214ISR

PATIENT
  Sex: Male

DRUGS (3)
  1. OXALIPLATIN [Suspect]
     Indication: COLORECTAL CANCER METASTATIC
  2. BEVACIZUMAB [Suspect]
     Indication: COLORECTAL CANCER METASTATIC
  3. CAPECITABINE [Suspect]
     Indication: COLORECTAL CANCER METASTATIC

REACTIONS (1)
  - GASTROINTESTINAL PERFORATION [None]
